FAERS Safety Report 21158383 (Version 1)
Quarter: 2022Q3

REPORT INFORMATION
  Report Type: Spontaneous
  Country: AU (occurrence: AU)
  Receive Date: 20220801
  Receipt Date: 20220801
  Transmission Date: 20221027
  Serious: Yes (Other)
  Sender: FDA-Public Use
  Company Number: AU-AMGEN-AUSSP2022128710

PATIENT
  Age: 72 Year
  Sex: Female
  Weight: 69.5 kg

DRUGS (3)
  1. ROMOSOZUMAB [Suspect]
     Active Substance: ROMOSOZUMAB
     Indication: Thoracic vertebral fracture
     Dosage: UNK
     Route: 065
     Dates: start: 202104, end: 202204
  2. ROMOSOZUMAB [Suspect]
     Active Substance: ROMOSOZUMAB
     Indication: Osteoporosis
  3. EZETIMIBE [Concomitant]
     Active Substance: EZETIMIBE

REACTIONS (6)
  - Neuropathy peripheral [Unknown]
  - Osteoarthritis [Unknown]
  - Wrist fracture [Unknown]
  - Upper-airway cough syndrome [Unknown]
  - Gastrooesophageal reflux disease [Unknown]
  - Dyslipidaemia [Unknown]

NARRATIVE: CASE EVENT DATE: 20210601
